FAERS Safety Report 10698870 (Version 1)
Quarter: 2015Q1

REPORT INFORMATION
  Report Type: Spontaneous
  Country: US (occurrence: US)
  Receive Date: 20150108
  Receipt Date: 20150108
  Transmission Date: 20150721
  Serious: No
  Sender: FDA-Public Use
  Company Number: US-BRISTOL-MYERS SQUIBB COMPANY-BMS-2014-004885

PATIENT
  Age: 66 Year
  Sex: Female
  Weight: 67.12 kg

DRUGS (3)
  1. ALTACE [Concomitant]
     Active Substance: RAMIPRIL
     Route: 065
  2. ORENCIA [Suspect]
     Active Substance: ABATACEPT
     Indication: RHEUMATOID ARTHRITIS
     Dosage: 125 MG, UNK
     Route: 058
     Dates: start: 201407
  3. PREDNISONE. [Concomitant]
     Active Substance: PREDNISONE
     Dosage: 13 MG, UNK
     Route: 065

REACTIONS (3)
  - Headache [Unknown]
  - Drug dose omission [Unknown]
  - Drug effect delayed [Unknown]

NARRATIVE: CASE EVENT DATE: 20141218
